FAERS Safety Report 16084269 (Version 1)
Quarter: 2019Q1

REPORT INFORMATION
  Report Type: Spontaneous
  Country: US (occurrence: US)
  Receive Date: 20190318
  Receipt Date: 20190318
  Transmission Date: 20190418
  Serious: Yes (Other)
  Sender: FDA-Public Use
  Company Number: US-MYLANLABS-2019M1024499

PATIENT

DRUGS (2)
  1. FENTANYL. [Suspect]
     Active Substance: FENTANYL
     Indication: PAIN
     Dosage: UNK
  2. MORPHINE [Suspect]
     Active Substance: MORPHINE
     Indication: PAIN
     Dosage: 30 MILLIGRAM, TID
     Route: 048

REACTIONS (3)
  - Impaired work ability [Unknown]
  - Mental disorder [Unknown]
  - Drug use disorder [Unknown]
